FAERS Safety Report 24687512 (Version 1)
Quarter: 2024Q4

REPORT INFORMATION
  Report Type: Spontaneous
  Country: CH (occurrence: CH)
  Receive Date: 20241202
  Receipt Date: 20241202
  Transmission Date: 20250115
  Serious: Yes (Life-Threatening, Hospitalization, Other)
  Sender: MYLAN
  Company Number: None

PATIENT
  Age: 75 Year
  Sex: Male
  Weight: 77 kg

DRUGS (39)
  1. METOCLOPRAMIDE [Suspect]
     Active Substance: METOCLOPRAMIDE
     Indication: Product used for unknown indication
     Dosage: UNK (10 MG METOCLOPRAMIDE/ 2 ML)
     Route: 042
     Dates: start: 20240902
  2. ATORVASTATIN [Interacting]
     Active Substance: ATORVASTATIN
     Indication: Product used for unknown indication
     Dosage: 40 MILLIGRAM, QD
     Route: 048
  3. TORSEMIDE [Interacting]
     Active Substance: TORSEMIDE
     Indication: Product used for unknown indication
     Dosage: 10 MILLIGRAM, QD (5 MG TORASEMIDE PER TABLET (1-1-0-0))
     Route: 048
  4. TORSEMIDE [Interacting]
     Active Substance: TORSEMIDE
     Dosage: 30 MILLIGRAM, QD (10 MG TORASEMIDE PER TABLET (3-0-0-0))
     Route: 048
  5. COLCHICINE [Suspect]
     Active Substance: COLCHICINE
     Indication: Pericarditis constrictive
     Dosage: 0.5 MILLIGRAM, BID (1 MG COLCHICINE PER TABLET)
     Route: 048
  6. COLCHICINE [Suspect]
     Active Substance: COLCHICINE
     Dosage: 5 MILLIGRAM, QD (1 MG COLCHICIN PER TABLET, 5-0-0.5-0)
     Route: 048
     Dates: start: 20240902, end: 20240903
  7. COLCHICINE [Suspect]
     Active Substance: COLCHICINE
     Dosage: 0.5 MILLIGRAM, QD (1 MG COLCHICIN PER TABLET, 5-0-0.5-0)
     Route: 048
     Dates: start: 20240902, end: 20240903
  8. ERYTHROMYCIN [Suspect]
     Active Substance: ERYTHROMYCIN
     Indication: Product used for unknown indication
     Dosage: UNK
     Route: 065
     Dates: end: 202409
  9. AMOXICILLIN\CLAVULANATE POTASSIUM [Suspect]
     Active Substance: AMOXICILLIN\CLAVULANATE POTASSIUM
     Indication: Product used for unknown indication
     Dosage: 1 DOSAGE FORM, Q8H (AMOXICILLIN 500 MG/CLAVULANIC ACID 125 MG PER TABLET)
     Route: 048
     Dates: start: 20240902
  10. ONDANSETRON [Suspect]
     Active Substance: ONDANSETRON
     Indication: Product used for unknown indication
     Dosage: 4 MILLIGRAM, BID
     Route: 042
     Dates: start: 20240902
  11. NOVALGIN (METAMIZOLE SODIUM) [Suspect]
     Active Substance: METAMIZOLE SODIUM
     Indication: Product used for unknown indication
     Dosage: UNK (1G METAMIZOLE/ 2 ML)
     Route: 042
     Dates: start: 20240902
  12. FRAGMIN [Suspect]
     Active Substance: DALTEPARIN SODIUM
     Indication: Product used for unknown indication
     Dosage: 0.2 MILLILITER (5000 I.U. DALTEPARIN/ 0.2 ML)
     Route: 058
     Dates: start: 20240903, end: 20240903
  13. FRAGMIN [Suspect]
     Active Substance: DALTEPARIN SODIUM
     Dosage: 0.2 MILLILITER (5000 I.U. DALTEPARIN/ 0.2 ML)
     Route: 058
  14. ASPIRIN [Interacting]
     Active Substance: ASPIRIN
     Indication: Product used for unknown indication
     Dosage: 100 MILLIGRAM, QD
     Route: 048
  15. EZETIMIBE\ROSUVASTATIN ZINC [Interacting]
     Active Substance: EZETIMIBE\ROSUVASTATIN ZINC
     Indication: Product used for unknown indication
     Dosage: 1 DOSAGE FORM, QD
     Route: 048
  16. TROSPIUM CHLORIDE [Interacting]
     Active Substance: TROSPIUM CHLORIDE
     Indication: Product used for unknown indication
     Dosage: 10 MILLIGRAM, QD (20 MG TROSPIUMCHLORIDE PER TABLET)
     Route: 048
  17. TAMSULOSIN HYDROCHLORIDE [Interacting]
     Active Substance: TAMSULOSIN HYDROCHLORIDE
     Indication: Product used for unknown indication
     Dosage: 0.4 MILLIGRAM, QD
     Route: 048
  18. PIPAMPERONE [Interacting]
     Active Substance: PIPAMPERONE
     Indication: Product used for unknown indication
     Dosage: 40 MILLIGRAM, QD
     Route: 048
  19. PANTOZOL [Interacting]
     Active Substance: PANTOPRAZOLE SODIUM
     Indication: Product used for unknown indication
     Dosage: 40 MILLIGRAM, QD
     Route: 048
  20. BISOPROLOL [Interacting]
     Active Substance: BISOPROLOL
     Indication: Product used for unknown indication
     Dosage: 2.5 MILLIGRAM, QD
     Route: 048
  21. BISOPROLOL [Interacting]
     Active Substance: BISOPROLOL
     Dosage: 5 MILLIGRAM, QD
     Route: 048
  22. CORDARONE [Interacting]
     Active Substance: AMIODARONE HYDROCHLORIDE
     Indication: Product used for unknown indication
     Dosage: 200 MILLIGRAM, QD
     Route: 048
     Dates: end: 202409
  23. JARDIANCE [Concomitant]
     Active Substance: EMPAGLIFLOZIN
     Dosage: 10 MILLIGRAM, QD
     Route: 048
  24. MOVICOL [Concomitant]
     Active Substance: POLYETHYLENE GLYCOL 3350\POTASSIUM CHLORIDE\SODIUM BICARBONATE\SODIUM CHLORIDE
     Dosage: 1 DOSAGE FORM, QD
     Route: 048
  25. FLUTICASONE FUROATE\VILANTEROL TRIFENATATE [Concomitant]
     Active Substance: FLUTICASONE FUROATE\VILANTEROL TRIFENATATE
     Dosage: 1 DOSAGE FORM, QD (184 ?G FLUTICASONFUROAT/ 22 ?G VILANTEROL PER SPRAY SHOT)
     Route: 055
  26. FLUTICASONE FUROATE\VILANTEROL TRIFENATATE [Concomitant]
     Active Substance: FLUTICASONE FUROATE\VILANTEROL TRIFENATATE
     Dosage: 1 DOSAGE FORM, QD
     Route: 055
     Dates: start: 20240901, end: 20240901
  27. FLUTICASONE FUROATE\VILANTEROL TRIFENATATE [Concomitant]
     Active Substance: FLUTICASONE FUROATE\VILANTEROL TRIFENATATE
     Dosage: 1 DOSAGE FORM, QD
     Route: 055
     Dates: start: 20240903, end: 20240903
  28. DAPAGLIFLOZIN [Concomitant]
     Active Substance: DAPAGLIFLOZIN
     Dosage: 10 MILLIGRAM, QD
     Route: 048
  29. CALCIUM CHLORIDE\MAGNESIUM CHLORIDE\MALIC ACID\POTASSIUM CHLORIDE\SODI [Concomitant]
     Active Substance: CALCIUM CHLORIDE\MAGNESIUM CHLORIDE\MALIC ACID\POTASSIUM CHLORIDE\SODIUM ACETATE\SODIUM CHLORIDE
     Dosage: 1000 MILLILITER
     Route: 042
     Dates: start: 20240902
  30. METFORMIN [Concomitant]
     Active Substance: METFORMIN HYDROCHLORIDE
     Dosage: 500 MILLIGRAM, QD
     Route: 048
  31. TRESIBA [Concomitant]
     Active Substance: INSULIN DEGLUDEC
     Dosage: 600 DOSAGE FORM, QD (100 I.U./ML)
     Route: 058
  32. TRESIBA [Concomitant]
     Active Substance: INSULIN DEGLUDEC
     Dosage: 600 DOSAGE FORM, TOTAL (100 I.U./ML)
     Route: 058
     Dates: start: 20240901, end: 20240901
  33. TRESIBA [Concomitant]
     Active Substance: INSULIN DEGLUDEC
     Dosage: 600 DOSAGE FORM, TOTAL (100 I.U./ML)
     Route: 058
     Dates: start: 20240903, end: 20240903
  34. MELATONIN [Concomitant]
     Active Substance: MELATONIN
     Dosage: 4 MILLIGRAM, QD (2 MG MELATONIN PER TABLET)
     Route: 048
  35. OXYCODONE HYDROCHLORIDE [Concomitant]
     Active Substance: OXYCODONE HYDROCHLORIDE
     Dosage: 5 MILLIGRAM
     Route: 048
     Dates: start: 20240903
  36. Prostaplant [Concomitant]
     Dosage: 1 DOSAGE FORM, QD
     Route: 048
  37. TETRAHYDROZOLINE HYDROCHLORIDE [Concomitant]
     Active Substance: TETRAHYDROZOLINE HYDROCHLORIDE
     Dosage: 2 DOSAGE FORM, Q6H (0.5 MG TETRYZOLINE HYDROCHLORIDE/ ML)
     Route: 047
  38. SERENOA REPENS WHOLE [Concomitant]
     Active Substance: SERENOA REPENS WHOLE
     Dosage: 320 MILLIGRAM, QD
     Route: 048
  39. ACETAMINOPHEN [Concomitant]
     Active Substance: ACETAMINOPHEN
     Dosage: UNK
     Route: 065

REACTIONS (7)
  - Toxicity to various agents [Recovered/Resolved]
  - Cardiogenic shock [Not Recovered/Not Resolved]
  - Leukopenia [Recovered/Resolved]
  - Thrombocytopenia [Recovered/Resolved]
  - Renal failure [Recovered/Resolved]
  - Incorrect dose administered [Not Recovered/Not Resolved]
  - Prescribed overdose [Not Recovered/Not Resolved]

NARRATIVE: CASE EVENT DATE: 20240902
